FAERS Safety Report 9826926 (Version 2)
Quarter: 2015Q1

REPORT INFORMATION
  Report Type: Spontaneous
  Country: US (occurrence: US)
  Receive Date: 20140117
  Receipt Date: 20150112
  Transmission Date: 20150721
  Serious: No
  Sender: FDA-Public Use
  Company Number: US-GLAXOSMITHKLINE-A1018109A

PATIENT

DRUGS (20)
  1. PROMACTA [Suspect]
     Active Substance: ELTROMBOPAG OLAMINE
     Indication: IMMUNE THROMBOCYTOPENIC PURPURA
     Dosage: 75 MG AND 50 MG
     Route: 048
     Dates: start: 201108
  2. EFFIENT [Concomitant]
     Active Substance: PRASUGREL HYDROCHLORIDE
  3. VITAMIN D3 [Concomitant]
     Active Substance: CHOLECALCIFEROL
  4. NOVOLOG [Concomitant]
     Active Substance: INSULIN ASPART
  5. ATENOLOL. [Concomitant]
     Active Substance: ATENOLOL
  6. CITALOPRAM [Concomitant]
     Active Substance: CITALOPRAM HYDROBROMIDE
  7. LEVOTHYROXINE [Concomitant]
     Active Substance: LEVOTHYROXINE
  8. NOVOLIN N [Concomitant]
     Active Substance: INSULIN HUMAN
  9. LISINOPRIL. [Concomitant]
     Active Substance: LISINOPRIL
  10. OMEPRAZOLE. [Concomitant]
     Active Substance: OMEPRAZOLE
  11. FUROSEMIDE. [Concomitant]
     Active Substance: FUROSEMIDE
  12. VITAMIN B6 [Concomitant]
     Active Substance: PYRIDOXINE HYDROCHLORIDE
  13. POTASSIUM CHLORIDE. [Concomitant]
     Active Substance: POTASSIUM CHLORIDE
  14. ASPIRIN. [Concomitant]
     Active Substance: ASPIRIN
  15. OCUVITE [Concomitant]
     Active Substance: VITAMINS
  16. LOVASTATIN. [Concomitant]
     Active Substance: LOVASTATIN
  17. FOLIC ACID. [Concomitant]
     Active Substance: FOLIC ACID
  18. CENTRUM [Concomitant]
     Active Substance: VITAMINS
  19. HYDROCODONE [Concomitant]
     Active Substance: HYDROCODONE
  20. VITAMIN B12 [Concomitant]
     Active Substance: CYANOCOBALAMIN

REACTIONS (6)
  - Drug ineffective [Unknown]
  - Visual acuity reduced [Not Recovered/Not Resolved]
  - Headache [Unknown]
  - Drug administration error [Unknown]
  - Adverse event [Not Recovered/Not Resolved]
  - Tremor [Not Recovered/Not Resolved]

NARRATIVE: CASE EVENT DATE: 201208
